FAERS Safety Report 8460029-3 (Version None)
Quarter: 2012Q2

REPORT INFORMATION
  Report Type: 
  Country: None (occurrence: None)
  Receive Date: 20120622
  Receipt Date: 20120619
  Transmission Date: 20120825
  Serious: Yes (Disabling, Other)
  Sender: FDA-Public Use
  Company Number: PHHY2012BR007272

PATIENT
  Sex: Female
  Weight: 68 kg

DRUGS (2)
  1. SIMVASTATIN [Suspect]
     Dosage: 20 MG, QD
     Route: 048
  2. LEVOID [Concomitant]
     Indication: THYROID DISORDER

REACTIONS (7)
  - OEDEMA PERIPHERAL [None]
  - PAIN [None]
  - MUSCULOSKELETAL PAIN [None]
  - JOINT SWELLING [None]
  - GAIT DISTURBANCE [None]
  - BLOOD URINE PRESENT [None]
  - RENAL DISORDER [None]
